FAERS Safety Report 12010902 (Version 3)
Quarter: 2018Q1

REPORT INFORMATION
  Report Type: Other
  Country: CA (occurrence: CA)
  Receive Date: 20160205
  Receipt Date: 20180124
  Transmission Date: 20180508
  Serious: Yes (Hospitalization)
  Sender: FDA-Public Use
  Company Number: CA-DUCHESNAY INC.-1047397

PATIENT
  Sex: Female
  Weight: 3.57 kg

DRUGS (10)
  1. MATERNA [Suspect]
     Active Substance: MINERALS\VITAMINS
     Route: 064
  2. SUBOXONE [Suspect]
     Active Substance: BUPRENORPHINE HYDROCHLORIDE\NALOXONE HYDROCHLORIDE
     Route: 064
  3. DICLEGIS [Suspect]
     Active Substance: DOXYLAMINE SUCCINATE\PYRIDOXINE HYDROCHLORIDE
     Indication: VOMITING
     Route: 064
     Dates: start: 2013, end: 2014
  4. SUBUTEX [Suspect]
     Active Substance: BUPRENORPHINE HYDROCHLORIDE
     Route: 064
     Dates: start: 2014, end: 2014
  5. OPIOIDS [Suspect]
     Active Substance: UNSPECIFIED INGREDIENT
     Route: 063
  6. TYLENOL [Suspect]
     Active Substance: ACETAMINOPHEN
     Route: 064
  7. DICLEGIS [Suspect]
     Active Substance: DOXYLAMINE SUCCINATE\PYRIDOXINE HYDROCHLORIDE
     Indication: NAUSEA
     Route: 064
     Dates: start: 2013, end: 2014
  8. SUBUTEX [Suspect]
     Active Substance: BUPRENORPHINE HYDROCHLORIDE
     Route: 063
     Dates: start: 2014, end: 2014
  9. OPIOIDS [Suspect]
     Active Substance: UNSPECIFIED INGREDIENT
     Route: 064
     Dates: start: 2013
  10. SUBOXONE [Suspect]
     Active Substance: BUPRENORPHINE HYDROCHLORIDE\NALOXONE HYDROCHLORIDE
     Route: 063
     Dates: start: 2014

REACTIONS (2)
  - Jaundice neonatal [Recovered/Resolved]
  - Foetal exposure during pregnancy [None]

NARRATIVE: CASE EVENT DATE: 2014
